FAERS Safety Report 16834659 (Version 1)
Quarter: 2019Q3

REPORT INFORMATION
  Report Type: Spontaneous
  Country: US (occurrence: US)
  Receive Date: 20190920
  Receipt Date: 20190920
  Transmission Date: 20191005
  Serious: No
  Sender: FDA-Public Use
  Company Number: US-TEVA-2019-US-1110760

PATIENT

DRUGS (1)
  1. ALBUTEROL SULFATE HFA 90 MCG [Suspect]
     Active Substance: ALBUTEROL SULFATE
     Route: 065

REACTIONS (3)
  - Wheezing [Unknown]
  - Device issue [Unknown]
  - Product cleaning inadequate [Unknown]
